FAERS Safety Report 18735836 (Version 1)
Quarter: 2021Q1

REPORT INFORMATION
  Report Type: Spontaneous
  Country: FR (occurrence: FR)
  Receive Date: 20210113
  Receipt Date: 20210113
  Transmission Date: 20210419
  Serious: Yes (Death, Hospitalization)
  Sender: FDA-Public Use
  Company Number: FR-PFIZER INC-2020111538

PATIENT
  Age: 70 Year
  Sex: Male
  Weight: 90 kg

DRUGS (2)
  1. GEMCITABINE HYDROCHLORIDE. [Suspect]
     Active Substance: GEMCITABINE HYDROCHLORIDE
     Indication: CHOLANGIOCARCINOMA
     Dosage: 1000 MG, UNK
     Route: 042
     Dates: start: 20190826, end: 20200107
  2. CISPLATIN. [Suspect]
     Active Substance: CISPLATIN
     Indication: CHOLANGIOCARCINOMA
     Dosage: 40 MG, UNK
     Route: 042
     Dates: start: 20190826, end: 20200107

REACTIONS (2)
  - Hepatic encephalopathy [Fatal]
  - Pancytopenia [Recovering/Resolving]

NARRATIVE: CASE EVENT DATE: 202001
